FAERS Safety Report 10480963 (Version 1)
Quarter: 2014Q3

REPORT INFORMATION
  Report Type: Spontaneous
  Country: US (occurrence: None)
  Receive Date: 20140923
  Receipt Date: 20140923
  Transmission Date: 20150326
  Serious: Yes (Hospitalization, Other)
  Sender: FDA-Public Use
  Company Number: 2006S1005486

PATIENT
  Age: 75 Year
  Sex: Male
  Weight: 65.32 kg

DRUGS (4)
  1. ASPIRIN (ACETYLSALICYLIC ACID) [Concomitant]
     Active Substance: ASPIRIN
  2. PHOSPHO-SODA [Suspect]
     Active Substance: SODIUM PHOSPHATE, DIBASIC\SODIUM PHOSPHATE, MONOBASIC
     Indication: COLONOSCOPY
     Route: 048
     Dates: start: 20020914
  3. ZYRTEC [Concomitant]
     Active Substance: CETIRIZINE HYDROCHLORIDE
  4. NASACORT (TRIAMCINOLONE ACETONIDE) [Concomitant]

REACTIONS (40)
  - Glomerulonephritis rapidly progressive [None]
  - Renal cyst [None]
  - Renal failure chronic [None]
  - Pleural fibrosis [None]
  - Arteriovenous fistula site haemorrhage [None]
  - Arthralgia [None]
  - Tubulointerstitial nephritis [None]
  - Hiccups [None]
  - Upper respiratory tract infection [None]
  - Nephrocalcinosis [None]
  - Prostatic specific antigen increased [None]
  - Atelectasis [None]
  - Contrast media reaction [None]
  - Calculus ureteric [None]
  - Influenza like illness [None]
  - Renal failure acute [None]
  - Metabolic acidosis [None]
  - Melaena [None]
  - Pneumonia [None]
  - Obstructive uropathy [None]
  - Renal tubular atrophy [None]
  - Scab [None]
  - Duodenal ulcer [None]
  - Haemodialysis [None]
  - Procedural hypotension [None]
  - Nausea [None]
  - Decreased appetite [None]
  - Nephrogenic anaemia [None]
  - Lung infiltration [None]
  - Glomerulosclerosis [None]
  - Pyrexia [None]
  - Hepatic neoplasm [None]
  - Epistaxis [None]
  - Urinary tract infection [None]
  - Renal tubular necrosis [None]
  - Azotaemia [None]
  - Device related sepsis [None]
  - Erosive duodenitis [None]
  - Rash [None]
  - Hyperkalaemia [None]

NARRATIVE: CASE EVENT DATE: 20021114
